FAERS Safety Report 5890113-X (Version None)
Quarter: 2008Q3

REPORT INFORMATION
  Report Type: 
  Country: None (occurrence: None)
  Receive Date: 20080919
  Receipt Date: 20080915
  Transmission Date: 20090109
  Serious: Yes (Death, Hospitalization, Other)
  Sender: FDA-Public Use
  Company Number: ES-B.I. PHARMACEUTICALS,INC./RIDGEFIELD-2008-DE-05440GD

PATIENT
  Age: 34 Year
  Sex: Male

DRUGS (9)
  1. TIOTROPIUM [Suspect]
     Indication: INTERSTITIAL LUNG DISEASE
     Route: 055
  2. PREDNISONE [Suspect]
     Indication: INTERSTITIAL LUNG DISEASE
     Dosage: 30MG
     Route: 042
  3. PREDNISONE [Suspect]
     Indication: PULMONARY FIBROSIS
  4. DEFLAZACORT [Suspect]
     Indication: PSORIATIC ARTHROPATHY
     Dosage: 30MG
  5. ALBUTEROL SPIROS [Suspect]
     Indication: INTERSTITIAL LUNG DISEASE
  6. AZATHIOPRINE [Suspect]
     Indication: INTERSTITIAL LUNG DISEASE
     Dosage: 100MG
  7. AZATHIOPRINE [Suspect]
     Indication: PULMONARY FIBROSIS
  8. METHOTREXATE [Suspect]
     Indication: INTERSTITIAL LUNG DISEASE
  9. METHOTREXATE [Suspect]
     Indication: PULMONARY FIBROSIS

REACTIONS (4)
  - CONDITION AGGRAVATED [None]
  - DRUG INEFFECTIVE [None]
  - HEPATIC FAILURE [None]
  - RESPIRATORY FAILURE [None]
